FAERS Safety Report 21529460 (Version 2)
Quarter: 2022Q4

REPORT INFORMATION
  Report Type: Spontaneous
  Country: JP (occurrence: JP)
  Receive Date: 20221031
  Receipt Date: 20221117
  Transmission Date: 20230112
  Serious: Yes (Death, Hospitalization, Other)
  Sender: FDA-Public Use
  Company Number: JP-ABBVIE-4178289

PATIENT
  Age: 87 Year
  Sex: Male

DRUGS (6)
  1. VENCLEXTA [Suspect]
     Active Substance: VENETOCLAX
     Indication: Blastic plasmacytoid dendritic cell neoplasia
     Dosage: 20 MILLIGRAM
     Route: 048
     Dates: start: 20220207, end: 20220308
  2. VENCLEXTA [Suspect]
     Active Substance: VENETOCLAX
     Indication: Blastic plasmacytoid dendritic cell neoplasia
     Dosage: 10 MILLIGRAM
     Route: 048
     Dates: start: 20220111, end: 2022
  3. ISOTONIC SODIUM CHLORIDE SOLUTION [Concomitant]
     Active Substance: SODIUM CHLORIDE
     Indication: Product used for unknown indication
     Dosage: 2000 MILLILITER
  4. VIDAZA [Suspect]
     Active Substance: AZACITIDINE
     Indication: Blastic plasmacytoid dendritic cell neoplasia
     Route: 065
  5. ITRACONAZOLE [Concomitant]
     Active Substance: ITRACONAZOLE
     Indication: Infection prophylaxis
     Route: 065
  6. FEBUXOSTAT [Concomitant]
     Active Substance: FEBUXOSTAT
     Indication: Product used for unknown indication
     Dosage: 60 MILLIGRAM
     Route: 048

REACTIONS (8)
  - Tumour lysis syndrome [Fatal]
  - Off label use [Unknown]
  - Bacterial infection [Recovered/Resolved]
  - Pneumonia aspiration [Fatal]
  - Blastic plasmacytoid dendritic cell neoplasia [Unknown]
  - Drug ineffective [Unknown]
  - Renal failure [Fatal]
  - Condition aggravated [Unknown]
